FAERS Safety Report 11947032 (Version 1)
Quarter: 2016Q1

REPORT INFORMATION
  Report Type: Report from Study
  Country: US (occurrence: US)
  Receive Date: 20160125
  Receipt Date: 20160125
  Transmission Date: 20160526
  Serious: No
  Sender: FDA-Public Use
  Company Number: US-AMGEN-USASL2015131326

PATIENT
  Age: 68 Year
  Sex: Male

DRUGS (1)
  1. REPATHA [Suspect]
     Active Substance: EVOLOCUMAB
     Indication: PRODUCT USED FOR UNKNOWN INDICATION
     Dosage: 140 MG, Q2WK
     Route: 065
     Dates: start: 20151015, end: 20151130

REACTIONS (11)
  - Head discomfort [Unknown]
  - Vomiting [Unknown]
  - Feeling abnormal [Unknown]
  - Infection [Unknown]
  - Nasopharyngitis [Unknown]
  - Nausea [Unknown]
  - Decreased appetite [Unknown]
  - Influenza like illness [Unknown]
  - Pain [Unknown]
  - Respiratory tract congestion [Unknown]
  - Cough [Not Recovered/Not Resolved]

NARRATIVE: CASE EVENT DATE: 2015
